FAERS Safety Report 16100567 (Version 1)
Quarter: 2019Q1

REPORT INFORMATION
  Report Type: Spontaneous
  Country: US (occurrence: US)
  Receive Date: 20190321
  Receipt Date: 20190321
  Transmission Date: 20190418
  Serious: No
  Sender: FDA-Public Use
  Company Number: US-AMGEN-USASP2019042979

PATIENT
  Age: 47 Year
  Sex: Female

DRUGS (2)
  1. AIMOVIG [Suspect]
     Active Substance: ERENUMAB-AOOE
     Indication: MIGRAINE
     Dosage: 70 MILLIGRAM
     Route: 065
     Dates: start: 20180718, end: 20180718
  2. AIMOVIG [Suspect]
     Active Substance: ERENUMAB-AOOE
     Dosage: 140 MILLIGRAM, QMO
     Route: 065
     Dates: start: 201808

REACTIONS (5)
  - Incorrect route of product administration [Unknown]
  - Underdose [Unknown]
  - Injection site erythema [Not Recovered/Not Resolved]
  - Injection site swelling [Unknown]
  - Injection site indentation [Not Recovered/Not Resolved]

NARRATIVE: CASE EVENT DATE: 20190315
